FAERS Safety Report 23355039 (Version 1)
Quarter: 2024Q1

REPORT INFORMATION
  Report Type: Report from Study
  Country: US (occurrence: US)
  Receive Date: 20240101
  Receipt Date: 20240101
  Transmission Date: 20240409
  Serious: Yes (Other)
  Sender: FDA-Public Use
  Company Number: US-ABBVIE-5549221

PATIENT
  Sex: Female

DRUGS (2)
  1. HUMIRA [Suspect]
     Active Substance: ADALIMUMAB
     Indication: Crohn^s disease
     Dosage: FORM STRENGTH: 40 MILLIGRAM
     Route: 058
  2. HUMIRA [Suspect]
     Active Substance: ADALIMUMAB
     Dosage: FORM STRENGTH: 40 MILLIGRAM
     Route: 058

REACTIONS (6)
  - Cerebrovascular accident [Recovering/Resolving]
  - Urinary tract infection [Unknown]
  - Transient ischaemic attack [Unknown]
  - Feeling abnormal [Unknown]
  - Confusional state [Unknown]
  - Anxiety [Unknown]

NARRATIVE: CASE EVENT DATE: 20230101
